FAERS Safety Report 7852119-0 (Version None)
Quarter: 2011Q4

REPORT INFORMATION
  Report Type: 
  Country: None (occurrence: None)
  Receive Date: 20111026
  Receipt Date: 20111025
  Transmission Date: 20120403
  Serious: Yes (Hospitalization)
  Sender: FDA-Public Use
  Company Number: CH-PFIZER INC-2009311840

PATIENT
  Age: 61 Year
  Sex: Male

DRUGS (3)
  1. HALCION [Suspect]
     Dosage: 0.25 MG, 20 TABLETS
     Route: 048
     Dates: start: 20091004, end: 20091004
  2. EFFEXOR [Suspect]
     Indication: DEPRESSION
     Dosage: 75 MG, 10 TABLETS
     Route: 048
     Dates: start: 20091004, end: 20091004
  3. CARVEDILOL [Suspect]
     Dosage: 25 MG, 10 TABLETS
     Route: 048
     Dates: start: 20091004, end: 20091004

REACTIONS (5)
  - INTENTIONAL OVERDOSE [None]
  - SLOW RESPONSE TO STIMULI [None]
  - SOMNOLENCE [None]
  - SUICIDE ATTEMPT [None]
  - ELECTROCARDIOGRAM QT PROLONGED [None]
